FAERS Safety Report 5022691-7 (Version None)
Quarter: 2006Q2

REPORT INFORMATION
  Report Type: 
  Country: None (occurrence: None)
  Receive Date: 20060605
  Receipt Date: 20060517
  Transmission Date: 20061013
  Serious: Yes (Hospitalization, Other)
  Sender: FDA-Public Use
  Company Number: EWC031036634

PATIENT
  Age: 56 Year
  Sex: Female

DRUGS (7)
  1. OLANZAPINE [Suspect]
     Indication: BIPOLAR DISORDER
     Dosage: 10 MG, DAILY (1/D), ORAL
     Route: 048
     Dates: start: 20030512, end: 20030519
  2. FLUOXETINE HCL [Suspect]
     Indication: BIPOLAR DISORDER
     Dosage: 20 MG, DAILY (1/D), ORAL
     Route: 048
  3. MIRTAZAPINE [Concomitant]
  4. MIDAZOLAM HCL [Concomitant]
  5. CLORAZEPATE DIPOTASSIUM [Concomitant]
  6. CLOTIAPINE (CLOTIAPINE) [Concomitant]
  7. VALPROIC ACID [Concomitant]

REACTIONS (3)
  - ACUTE GENERALISED EXANTHEMATOUS PUSTULOSIS [None]
  - BIPOLAR I DISORDER [None]
  - HYPOMANIA [None]
